FAERS Safety Report 22125312 (Version 12)
Quarter: 2023Q4

REPORT INFORMATION
  Report Type: Spontaneous
  Country: US (occurrence: US)
  Receive Date: 20230322
  Receipt Date: 20231228
  Transmission Date: 20240110
  Serious: No
  Sender: FDA-Public Use
  Company Number: US-PFIZER INC-PV202300053314

PATIENT
  Age: 68 Year
  Sex: Female
  Weight: 68.04 kg

DRUGS (8)
  1. BRAFTOVI [Suspect]
     Active Substance: ENCORAFENIB
     Indication: Malignant melanoma
     Dosage: 150 MG, 3X/DAY (BRAFTOVI CAPSULES 75 MG DIRECTIONS: TAKE 2 CAPSULES (150 MG) BY MOUTH 3 TIMES DAILY)
     Route: 048
  2. BRAFTOVI [Suspect]
     Active Substance: ENCORAFENIB
     Indication: Metastatic malignant melanoma
     Dosage: 6 DF, DAILY (TAKES SIX 75MG CAPSULES DAILY)
     Dates: start: 202205
  3. BRAFTOVI [Suspect]
     Active Substance: ENCORAFENIB
     Dosage: 75 MG
  4. MEKTOVI [Suspect]
     Active Substance: BINIMETINIB
     Indication: Malignant melanoma
     Dosage: 30 MG, 3X/DAY (MEKTOVI TABLETS 15 MG DIRECTIONS: TAKE 2 TABLETS 30 MG BY MOUTH 3 TIMES DAILY)
     Route: 048
  5. MEKTOVI [Suspect]
     Active Substance: BINIMETINIB
     Indication: Metastatic malignant melanoma
     Dosage: 6 DF, DAILY (TAKES SIX 15MG PILLS DAILY)
     Dates: start: 202205
  6. MEKTOVI [Suspect]
     Active Substance: BINIMETINIB
     Dosage: 15 MG
  7. PREDNISONE [Concomitant]
     Active Substance: PREDNISONE
     Indication: Rheumatoid arthritis
     Dosage: 5 MG, 1X/DAY
  8. PREDNISONE [Concomitant]
     Active Substance: PREDNISONE
     Dosage: 5 MG, 2X/DAY (BUT IF SHE HAS FLARE UP OF RHEUMATOID ARTHRITIS WILL TAKE TWICE A DAY)

REACTIONS (4)
  - Illness [Unknown]
  - Crying [Unknown]
  - Malaise [Unknown]
  - Off label use [Unknown]
